FAERS Safety Report 23242323 (Version 1)
Quarter: 2023Q4

REPORT INFORMATION
  Report Type: Spontaneous
  Country: US (occurrence: US)
  Receive Date: 20231129
  Receipt Date: 20231129
  Transmission Date: 20240110
  Serious: No
  Sender: FDA-Public Use
  Company Number: US-GENMAB-2023-02151

PATIENT

DRUGS (1)
  1. EPKINLY [Suspect]
     Active Substance: EPCORITAMAB-BYSP
     Dosage: UNK
     Route: 065

REACTIONS (2)
  - Intercepted product preparation error [Unknown]
  - Product dose omission issue [Unknown]
